FAERS Safety Report 11912505 (Version 3)
Quarter: 2016Q1

REPORT INFORMATION
  Report Type: Report from Study
  Country: NL (occurrence: NL)
  Receive Date: 20160113
  Receipt Date: 20160223
  Transmission Date: 20160526
  Serious: Yes (Hospitalization, Other)
  Sender: FDA-Public Use
  Company Number: NL-AMGEN-NLDSL2016002030

PATIENT
  Age: 81 Year
  Sex: Male

DRUGS (3)
  1. XGEVA [Suspect]
     Active Substance: DENOSUMAB
     Indication: METASTASES TO BONE
     Dosage: UNK
     Route: 058
  2. XGEVA [Suspect]
     Active Substance: DENOSUMAB
     Indication: PROSTATE CANCER
     Dosage: 120 MG (IN 1.7 ML), Q4WK
     Route: 058
  3. XGEVA [Suspect]
     Active Substance: DENOSUMAB
     Dosage: UNK
     Route: 058

REACTIONS (3)
  - Terminal state [Unknown]
  - Malaise [Unknown]
  - Haematuria [Unknown]

NARRATIVE: CASE EVENT DATE: 20160128
